FAERS Safety Report 5302591-5 (Version None)
Quarter: 2007Q2

REPORT INFORMATION
  Report Type: 
  Country: None (occurrence: None)
  Receive Date: 20070419
  Receipt Date: 20070412
  Transmission Date: 20071010
  Serious: Yes (Hospitalization)
  Sender: FDA-Public Use
  Company Number: TW-ROXANE LABORATORIES, INC-2007-BP-04995RO

PATIENT
  Age: 60 Year
  Sex: Female

DRUGS (7)
  1. LITHIUM CARBONATE [Suspect]
     Indication: MANIA
     Dosage: 900 - 1200 MG/DAY
     Route: 048
  2. LITHIUM CARBONATE [Suspect]
     Dosage: 600 MG/DAY X 5 DAYS
     Route: 048
  3. LITHIUM CARBONATE [Suspect]
     Dosage: 600 MG/DAY X 7 DAYS
     Route: 048
  4. VALSARTAN [Suspect]
     Indication: HYPERTENSION
     Dosage: 80 MG/DAY X 14 DAYS
     Route: 048
  5. VALPROATE SODIUM [Suspect]
     Indication: MANIA
     Dosage: 1500 MG/DAY
     Route: 048
  6. VALPROATE SODIUM [Suspect]
     Route: 048
  7. CLONAZEPAM [Suspect]
     Indication: MANIA
     Dosage: 2 MG/DAY
     Route: 048

REACTIONS (8)
  - ANTIPSYCHOTIC DRUG LEVEL INCREASED [None]
  - COORDINATION ABNORMAL [None]
  - DYSKINESIA [None]
  - FALL [None]
  - GAIT DISTURBANCE [None]
  - MUSCLE RIGIDITY [None]
  - RENAL IMPAIRMENT [None]
  - THERAPEUTIC AGENT TOXICITY [None]
